FAERS Safety Report 23342509 (Version 2)
Quarter: 2024Q1

REPORT INFORMATION
  Report Type: Spontaneous
  Country: CA (occurrence: CA)
  Receive Date: 20231227
  Receipt Date: 20240304
  Transmission Date: 20240409
  Serious: Yes (Other)
  Sender: FDA-Public Use
  Company Number: CA-VIIV HEALTHCARE LIMITED-CA2023AMR060355

PATIENT
  Age: 62 Year
  Sex: Female

DRUGS (2)
  1. RILPIVIRINE [Suspect]
     Active Substance: RILPIVIRINE
     Indication: HIV infection
     Dosage: UNK, Q2M, (600MG/3ML) CABOTEGRAVIR AND (900MG/3ML) RILPIVIRINE INJECTION, EXPIRY: 31-AUG-2025, 30-SE
     Route: 030
     Dates: start: 20230203
  2. CABOTEGRAVIR [Suspect]
     Active Substance: CABOTEGRAVIR
     Indication: HIV infection
     Dosage: UNK, Q2M, (600MG/3ML) CABOTEGRAVIR AND (900MG/3ML) RILPIVIRINE INJECTION, EXPIRY: 31-AUG-2025, 30-SE
     Route: 030
     Dates: start: 20230203

REACTIONS (2)
  - Bladder cancer [Unknown]
  - Injection site pain [Recovering/Resolving]
